FAERS Safety Report 25773256 (Version 1)
Quarter: 2025Q3

REPORT INFORMATION
  Report Type: Spontaneous
  Country: US (occurrence: US)
  Receive Date: 20250908
  Receipt Date: 20250908
  Transmission Date: 20251021
  Serious: No
  Sender: ELI LILLY AND COMPANY
  Company Number: US-ELI_LILLY_AND_COMPANY-US202509006109

PATIENT
  Age: 66 Year
  Sex: Female

DRUGS (1)
  1. VERZENIO [Suspect]
     Active Substance: ABEMACICLIB
     Indication: Endometrial cancer
     Dosage: 100 MG, BID
     Route: 048
     Dates: start: 20250718

REACTIONS (3)
  - Oedema peripheral [Unknown]
  - Peripheral swelling [Unknown]
  - Pain in extremity [Unknown]
